FAERS Safety Report 4816597-3 (Version None)
Quarter: 2005Q4

REPORT INFORMATION
  Report Type: 
  Country: None (occurrence: None)
  Receive Date: 20051028
  Receipt Date: 20051017
  Transmission Date: 20060501
  Serious: Yes (Hospitalization, Other)
  Sender: FDA-Public Use
  Company Number: 2005144288

PATIENT
  Age: 52 Year
  Sex: Male
  Weight: 78.0187 kg

DRUGS (7)
  1. ZOLOFT [Suspect]
     Indication: AGITATION
     Dosage: 50 MG 1 IN 1 D
  2. ZOLOFT [Suspect]
     Indication: BLOOD PRESSURE INCREASED
     Dosage: 50 MG 1 IN 1 D
  3. NORVASC [Suspect]
     Indication: HYPERTENSION
     Dates: start: 20050101
  4. TAMSULOSIN HCL [Suspect]
     Indication: PROSTATE EXAMINATION ABNORMAL
     Dates: start: 20050101, end: 20050101
  5. VICODIN [Suspect]
     Indication: PAIN
     Dates: start: 20050101
  6. VALSARTAN [Concomitant]
  7. HYDROCHLOROTHIAZIDE [Concomitant]

REACTIONS (12)
  - BLOOD PRESSURE FLUCTUATION [None]
  - DRUG INEFFECTIVE [None]
  - DYSURIA [None]
  - ERECTILE DYSFUNCTION [None]
  - ERUCTATION [None]
  - FLATULENCE [None]
  - IMPAIRED HEALING [None]
  - METASTASES TO LYMPH NODES [None]
  - POSTOPERATIVE CONSTIPATION [None]
  - PROCEDURAL PAIN [None]
  - PROSTATE EXAMINATION ABNORMAL [None]
  - RENAL CELL CARCINOMA STAGE UNSPECIFIED [None]
